FAERS Safety Report 9977746 (Version 1)
Quarter: 2014Q1

REPORT INFORMATION
  Report Type: Spontaneous
  Country: US (occurrence: US)
  Receive Date: 20140306
  Receipt Date: 20140306
  Transmission Date: 20141002
  Serious: No
  Sender: FDA-Public Use
  Company Number: US-ABBVIE-13P-163-1162947-00

PATIENT
  Age: 69 Year
  Sex: Female
  Weight: 63.56 kg

DRUGS (5)
  1. HUMIRA [Suspect]
     Indication: RHEUMATOID ARTHRITIS
     Route: 058
     Dates: start: 201303
  2. PLAQUENIL [Concomitant]
     Indication: RHEUMATOID ARTHRITIS
  3. PAXIL [Concomitant]
     Indication: ANXIETY
  4. XALATAN [Concomitant]
     Indication: GLAUCOMA
  5. ALEVE [Concomitant]
     Indication: PAIN

REACTIONS (1)
  - Pruritus [Not Recovered/Not Resolved]
